FAERS Safety Report 24621080 (Version 2)
Quarter: 2024Q4

REPORT INFORMATION
  Report Type: Report from Study
  Country: JP (occurrence: JP)
  Receive Date: 20241114
  Receipt Date: 20241227
  Transmission Date: 20250114
  Serious: Yes (Other)
  Sender: AKEBIA THERAPEUTICS
  Company Number: JP-MTPC-MTPC2024-0023017

PATIENT
  Age: 83 Year
  Sex: Male
  Weight: 67.2 kg

DRUGS (8)
  1. VADADUSTAT [Suspect]
     Active Substance: VADADUSTAT
     Indication: Nephrogenic anaemia
     Dosage: 300 MILLIGRAM, QD
     Route: 048
     Dates: start: 20220714, end: 20220907
  2. VADADUSTAT [Suspect]
     Active Substance: VADADUSTAT
     Dosage: 450 MILLIGRAM, QD
     Route: 048
     Dates: start: 20220908, end: 20220928
  3. VADADUSTAT [Suspect]
     Active Substance: VADADUSTAT
     Dosage: 600 MILLIGRAM, QD
     Route: 048
     Dates: start: 20220929, end: 20221123
  4. DARBEPOETIN ALFA [Concomitant]
     Active Substance: DARBEPOETIN ALFA
     Indication: Nephrogenic anaemia
     Dosage: 10 MICROGRAM, Q2WEEKS
     Route: 058
     Dates: start: 20220616, end: 20220629
  5. METHOXY POLYETHYLENE GLYCOL-EPOETIN BETA [Concomitant]
     Active Substance: METHOXY POLYETHYLENE GLYCOL-EPOETIN BETA
     Indication: Nephrogenic anaemia
     Dosage: 25 MICROGRAM, Q2WEEKS
     Route: 058
     Dates: start: 20220630, end: 20220713
  6. TETRAFERRIC TRICITRATE DECAHYDRATE [Concomitant]
     Active Substance: TETRAFERRIC TRICITRATE DECAHYDRATE
     Indication: Product used for unknown indication
     Dosage: 500 MILLIGRAM, QD
     Route: 048
     Dates: start: 20220630
  7. BENIDIPINE HYDROCHLORIDE [Concomitant]
     Active Substance: BENIDIPINE HYDROCHLORIDE
     Indication: Product used for unknown indication
     Dosage: 8 MILLIGRAM, QD
     Route: 048
     Dates: start: 20220630
  8. CANDESARTAN CILEXETIL [Concomitant]
     Active Substance: CANDESARTAN CILEXETIL
     Indication: Product used for unknown indication
     Dosage: 8 MILLIGRAM, QD
     Route: 048
     Dates: start: 20220630

REACTIONS (1)
  - Lung neoplasm malignant [Unknown]

NARRATIVE: CASE EVENT DATE: 20230531
